FAERS Safety Report 7757548-1 (Version None)
Quarter: 2011Q3

REPORT INFORMATION
  Report Type: 
  Country: None (occurrence: None)
  Receive Date: 20110916
  Receipt Date: 20110916
  Transmission Date: 20111222
  Serious: Yes (Other)
  Sender: FDA-Public Use
  Company Number: US-PFIZER INC-2010162941

PATIENT
  Sex: Female
  Weight: 86 kg

DRUGS (10)
  1. LORTAB [Concomitant]
     Dosage: 10/500 MG; THREE TIMES A DAY
     Route: 048
  2. CHANTIX [Suspect]
     Dosage: 1 MG, 2X/DAY
  3. CLONAZEPAM [Concomitant]
     Dosage: 1 MG, DAILY
     Route: 048
  4. CHANTIX [Suspect]
     Indication: SMOKING CESSATION THERAPY
     Dosage: 0.5 MG, 1X/DAY
     Route: 048
     Dates: start: 20101101
  5. SOMA [Concomitant]
     Dosage: 350 MG, 3X/DAY
     Route: 048
  6. MAXALT [Concomitant]
     Indication: MIGRAINE
     Dosage: UNK
     Route: 048
  7. CHANTIX [Suspect]
     Dosage: UNK
  8. VALSARTAN [Concomitant]
     Indication: HYPERTENSION
     Dosage: 160 MG, 1X/DAY
     Route: 048
  9. CLONIDINE [Concomitant]
     Indication: HYPERTENSION
     Dosage: 1 MG, 1X/DAY
     Route: 048
  10. VALIUM [Concomitant]
     Dosage: 10 MG, 2X/DAY
     Route: 048

REACTIONS (2)
  - EMOTIONAL DISORDER [None]
  - SURGERY [None]
